FAERS Safety Report 5046434-6 (Version None)
Quarter: 2006Q3

REPORT INFORMATION
  Report Type: 
  Country: None (occurrence: None)
  Receive Date: 20060710
  Receipt Date: 20060705
  Transmission Date: 20061208
  Serious: Yes (Other)
  Sender: FDA-Public Use
  Company Number: US-GLAXOSMITHKLINE-A0611177A

PATIENT
  Sex: Male

DRUGS (2)
  1. MEPRON [Suspect]
     Route: 048
  2. HIV TREATMENTS (UNSPECIFIED) [Concomitant]

REACTIONS (1)
  - HYPOGLYCAEMIA [None]
